FAERS Safety Report 10774928 (Version 2)
Quarter: 2015Q1

REPORT INFORMATION
  Report Type: Spontaneous
  Country: US (occurrence: US)
  Receive Date: 20150209
  Receipt Date: 20150304
  Transmission Date: 20150721
  Serious: Yes (Hospitalization)
  Sender: FDA-Public Use
  Company Number: US-TEVA-538790USA

PATIENT
  Age: 73 Year
  Sex: Female
  Weight: 79 kg

DRUGS (4)
  1. PROAIR HFA [Suspect]
     Active Substance: ALBUTEROL SULFATE
     Indication: NASOPHARYNGITIS
     Dosage: 90 MICROGRAM DAILY; 2 PUFFS
     Route: 055
  2. AMPICILLIN [Concomitant]
     Active Substance: AMPICILLIN
     Indication: NASOPHARYNGITIS
     Dosage: 1500 MILLIGRAM DAILY;
     Dates: start: 20150109
  3. HYDROCODONE [Concomitant]
     Active Substance: HYDROCODONE
     Indication: ARTHRALGIA
     Route: 065
  4. OXYCODONE [Concomitant]
     Active Substance: OXYCODONE
     Indication: ARTHRALGIA
     Route: 065

REACTIONS (4)
  - Chest pain [Recovering/Resolving]
  - Pneumonia [Recovering/Resolving]
  - Palpitations [Recovering/Resolving]
  - Bronchitis [Recovering/Resolving]

NARRATIVE: CASE EVENT DATE: 20150204
